FAERS Safety Report 10225137 (Version 1)
Quarter: 2014Q2

REPORT INFORMATION
  Report Type: Spontaneous
  Country: JP (occurrence: JP)
  Receive Date: 20140609
  Receipt Date: 20140609
  Transmission Date: 20141212
  Serious: Yes (Other)
  Sender: FDA-Public Use
  Company Number: JP-ASTELLAS-2014JP006525

PATIENT
  Age: 33 Year
  Sex: Male

DRUGS (6)
  1. PROGRAF [Suspect]
     Indication: SUICIDE ATTEMPT
     Route: 048
     Dates: start: 20140510
  2. PROGRAF [Suspect]
     Indication: SUICIDE ATTEMPT
     Route: 048
     Dates: start: 20140510
  3. NEUROVITAN [Suspect]
     Indication: SUICIDE ATTEMPT
     Route: 048
     Dates: start: 20140510
  4. GOUT RELIEF [Concomitant]
     Indication: SUICIDE ATTEMPT
     Route: 048
     Dates: start: 20140510
  5. DEPRESSOR [Concomitant]
     Indication: SUICIDE ATTEMPT
     Route: 048
     Dates: start: 20140510
  6. COUGH SUPPRESSANTS AND EXPECTORANTS, COMBINAT [Concomitant]
     Indication: SUICIDE ATTEMPT
     Route: 048
     Dates: start: 20140510

REACTIONS (3)
  - Mydriasis [Unknown]
  - Rash [Unknown]
  - Intentional overdose [Unknown]
